APPROVED DRUG PRODUCT: CALCITONIN-SALMON
Active Ingredient: CALCITONIN SALMON
Strength: 200 IU/ML
Dosage Form/Route: INJECTABLE;INJECTION
Application: A219196 | Product #001 | TE Code: AP
Applicant: SAGENT PHARMACEUTICALS
Approved: Jul 9, 2025 | RLD: No | RS: No | Type: RX